FAERS Safety Report 17091549 (Version 1)
Quarter: 2019Q4

REPORT INFORMATION
  Report Type: Spontaneous
  Country: US (occurrence: US)
  Receive Date: 20191127
  Receipt Date: 20191127
  Transmission Date: 20200122
  Serious: Yes (Other)
  Sender: FDA-Public Use
  Company Number: None

PATIENT
  Age: 50 Year
  Sex: Male
  Weight: 105.69 kg

DRUGS (2)
  1. LOVENOX 100MG/ML - NEEDS BRAND (GENERIC ONLY) [Suspect]
     Active Substance: ENOXAPARIN SODIUM
     Indication: DEEP VEIN THROMBOSIS
     Route: 058
     Dates: start: 2017
  2. LOVENOX 100MG/ML - NEEDS BRAND (GENERIC ONLY) [Suspect]
     Active Substance: ENOXAPARIN SODIUM
     Indication: ANTICOAGULANT THERAPY
     Route: 058
     Dates: start: 2017

REACTIONS (1)
  - Injection site nodule [None]

NARRATIVE: CASE EVENT DATE: 2017
